FAERS Safety Report 8113353-8 (Version None)
Quarter: 2012Q1

REPORT INFORMATION
  Report Type: 
  Country: None (occurrence: None)
  Receive Date: 20120203
  Receipt Date: 20120130
  Transmission Date: 20120608
  Serious: Yes (Other)
  Sender: FDA-Public Use
  Company Number: PHEH2012US002665

PATIENT
  Sex: Female

DRUGS (2)
  1. CARBAMAZEPINE [Suspect]
     Dosage: 2 PER DAY
     Route: 048
  2. DIAZEPAM [Concomitant]
     Dosage: 1 DF, QD

REACTIONS (1)
  - GRAND MAL CONVULSION [None]
